FAERS Safety Report 7348356-4 (Version None)
Quarter: 2011Q1

REPORT INFORMATION
  Report Type: 
  Country: None (occurrence: None)
  Receive Date: 20110311
  Receipt Date: 20110308
  Transmission Date: 20110831
  Serious: Yes (Other)
  Sender: FDA-Public Use
  Company Number: US-PFIZER INC-2011050972

PATIENT
  Sex: Male
  Weight: 91.156 kg

DRUGS (3)
  1. GEODON [Suspect]
     Indication: BIPOLAR DISORDER
     Dosage: 60 MG, 2X/DAY
     Dates: start: 20101001
  2. LISINOPRIL [Concomitant]
     Indication: HYPERTENSION
     Dosage: 80 MG, UNK
  3. ACETYLSALICYLIC ACID [Concomitant]
     Dosage: UNK

REACTIONS (3)
  - WEIGHT INCREASED [None]
  - GLYCOSYLATED HAEMOGLOBIN INCREASED [None]
  - INSOMNIA [None]
